FAERS Safety Report 25460080 (Version 2)
Quarter: 2025Q3

REPORT INFORMATION
  Report Type: Spontaneous
  Country: US (occurrence: US)
  Receive Date: 20250620
  Receipt Date: 20250725
  Transmission Date: 20251020
  Serious: No
  Sender: BRISTOL-MYERS SQUIBB COMPANY
  Company Number: US-BRISTOL-MYERS SQUIBB COMPANY-2025-087196

PATIENT
  Age: 73 Year
  Sex: Male
  Weight: 82.55 kg

DRUGS (2)
  1. POMALYST [Suspect]
     Active Substance: POMALIDOMIDE
     Indication: Plasma cell myeloma
     Route: 048
     Dates: start: 20250602
  2. NINLARO [Concomitant]
     Active Substance: IXAZOMIB CITRATE
     Indication: Product used for unknown indication
     Route: 048
     Dates: start: 20250602

REACTIONS (4)
  - Blood urine present [Recovering/Resolving]
  - Rash pruritic [Recovering/Resolving]
  - Hiccups [Recovered/Resolved]
  - Dyspepsia [Recovered/Resolved]
